FAERS Safety Report 8062847-2 (Version None)
Quarter: 2012Q1

REPORT INFORMATION
  Report Type: 
  Country: None (occurrence: None)
  Receive Date: 20120111
  Receipt Date: 20111228
  Transmission Date: 20120608
  Serious: Yes (Hospitalization, Other)
  Sender: FDA-Public Use
  Company Number: 2011PROUSA00712

PATIENT
  Age: 69 Year
  Sex: Male
  Weight: 94.8 kg

DRUGS (12)
  1. OXYCODONE (OXYCODONE) TABLET [Concomitant]
  2. PRILOSEC [Concomitant]
  3. ELIGARD [Concomitant]
  4. DICYCLOMINE HCL (DICYCLOVERINE HYDROCHLORIDE) [Concomitant]
  5. PROVENGE [Suspect]
     Indication: PROSTATE CANCER METASTATIC
     Dosage: 250 ML, SINGLE, INTRAVENOUS
     Route: 042
     Dates: start: 20111014, end: 20111014
  6. PROVENGE [Suspect]
     Indication: PROSTATE CANCER METASTATIC
     Dosage: 250 ML, SINGLE, INTRAVENOUS
     Route: 042
     Dates: start: 20111028, end: 20111028
  7. LUPRON (LEUPRORELIN ACETATE) INJECTION [Concomitant]
  8. ASPIRIN [Concomitant]
  9. PLAVIX (CLOPIDOGREL BISULFATE) TABLET [Concomitant]
  10. CRESTOR [Concomitant]
  11. SENNOSIDES A+B (SENNOSIDE A+B) TABLET [Concomitant]
  12. METOPROLOL TARTRATE [Concomitant]

REACTIONS (17)
  - CAROTID ARTERY STENOSIS [None]
  - TRANSIENT ISCHAEMIC ATTACK [None]
  - LYMPHADENOPATHY [None]
  - BODY TEMPERATURE INCREASED [None]
  - PYREXIA [None]
  - MALAISE [None]
  - SINUS CONGESTION [None]
  - CEREBROVASCULAR ACCIDENT [None]
  - MASS [None]
  - OEDEMA PERIPHERAL [None]
  - HEART RATE INCREASED [None]
  - ASTHENIA [None]
  - SOMNOLENCE [None]
  - FATIGUE [None]
  - CHILLS [None]
  - BLOOD PRESSURE INCREASED [None]
  - INFUSION RELATED REACTION [None]
